FAERS Safety Report 18350478 (Version 2)
Quarter: 2020Q4

REPORT INFORMATION
  Report Type: Spontaneous
  Country: US (occurrence: US)
  Receive Date: 20201006
  Receipt Date: 20201030
  Transmission Date: 20210114
  Serious: Yes (Hospitalization)
  Sender: FDA-Public Use
  Company Number: US-JNJFOC-A-US2020-206176

PATIENT
  Age: 45 Year
  Sex: Female
  Weight: 79.37 kg

DRUGS (4)
  1. UPTRAVI [Suspect]
     Active Substance: SELEXIPAG
     Dosage: 1000 MCG IN AM AND 1200MCG IN PM. WAITING FOR SOME TEST RESULTS FOR FURTHER UPTRAVI DOSE INCREASES
     Route: 048
  2. UPTRAVI [Suspect]
     Active Substance: SELEXIPAG
     Indication: PULMONARY ARTERIAL HYPERTENSION
     Dosage: 1000 MCG, BID
     Route: 048
  3. OPSUMIT [Suspect]
     Active Substance: MACITENTAN
     Dosage: 10 MG, QD
     Route: 048
  4. OPSUMIT [Suspect]
     Active Substance: MACITENTAN
     Indication: PULMONARY ARTERIAL HYPERTENSION
     Dosage: 10 MG, QD
     Route: 048

REACTIONS (5)
  - COVID-19 [Unknown]
  - Dependence on respirator [Recovered/Resolved]
  - Productive cough [Unknown]
  - Headache [Unknown]
  - Asthenia [Unknown]

NARRATIVE: CASE EVENT DATE: 202006
